FAERS Safety Report 4870951-2 (Version None)
Quarter: 2005Q4

REPORT INFORMATION
  Report Type: 
  Country: None (occurrence: None)
  Receive Date: 20051228
  Receipt Date: 20051219
  Transmission Date: 20060501
  Serious: Yes (Death)
  Sender: FDA-Public Use
  Company Number: 2005-135969-NL

PATIENT
  Sex: Male

DRUGS (4)
  1. DEXAMETHASONE TAB [Suspect]
     Dosage: 10 MG/M2, ORAL
     Route: 048
  2. ASPARAGINASE [Suspect]
     Indication: ACUTE LYMPHOCYTIC LEUKAEMIA
  3. DOXORUBICIN [Suspect]
     Indication: ACUTE MYELOID LEUKAEMIA
     Dosage: 25MG/M2
  4. VINCRISTINE [Suspect]
     Dosage: 1.5 MG/M2

REACTIONS (10)
  - ADENOVIRUS INFECTION [None]
  - CATHETER SITE INFECTION [None]
  - COAGULOPATHY [None]
  - HEPATIC ENCEPHALOPATHY [None]
  - HEPATITIS [None]
  - HEPATOMEGALY [None]
  - HERPES SIMPLEX [None]
  - PSEUDOMONAS INFECTION [None]
  - RENAL IMPAIRMENT [None]
  - STAPHYLOCOCCAL INFECTION [None]
